FAERS Safety Report 25526737 (Version 1)
Quarter: 2025Q3

REPORT INFORMATION
  Report Type: Spontaneous
  Country: US (occurrence: US)
  Receive Date: 20250707
  Receipt Date: 20250707
  Transmission Date: 20251021
  Serious: Yes (Other)
  Sender: PURDUE
  Company Number: US-PURDUE PHARMA-USA-2025-0318688

PATIENT
  Sex: Male

DRUGS (4)
  1. OXYCONTIN [Suspect]
     Active Substance: OXYCODONE HYDROCHLORIDE
     Indication: Product used for unknown indication
     Route: 048
  2. OXYCODONE HYDROCHLORIDE [Suspect]
     Active Substance: OXYCODONE HYDROCHLORIDE
     Indication: Analgesic therapy
     Route: 065
  3. MORPHINE SULFATE [Suspect]
     Active Substance: MORPHINE SULFATE
     Indication: Analgesic therapy
     Route: 065
  4. TYLENOL [Suspect]
     Active Substance: ACETAMINOPHEN
     Indication: Analgesic therapy
     Route: 065

REACTIONS (18)
  - Drug dependence [Recovered/Resolved]
  - Cognitive disorder [Unknown]
  - Quality of life decreased [Unknown]
  - Emotional distress [Unknown]
  - Back pain [Unknown]
  - General physical health deterioration [Unknown]
  - Disturbance in attention [Unknown]
  - Mental disorder [Unknown]
  - Tooth injury [Unknown]
  - Migraine [Unknown]
  - Amnesia [Unknown]
  - Injury [Unknown]
  - Depression [Unknown]
  - Insomnia [Unknown]
  - Product prescribing issue [Unknown]
  - Somnolence [Unknown]
  - Anxiety [Unknown]
  - Drug withdrawal syndrome [Unknown]
